FAERS Safety Report 6142803-1 (Version None)
Quarter: 2009Q2

REPORT INFORMATION
  Report Type: 
  Country: None (occurrence: None)
  Receive Date: 20090403
  Receipt Date: 20090401
  Transmission Date: 20091009
  Serious: No
  Sender: FDA-Public Use
  Company Number: US-B.I. PHARMACEUTICALS,INC./RIDGEFIELD-2009-BP-03395BP

PATIENT
  Sex: Male

DRUGS (15)
  1. SPIRIVA [Suspect]
     Indication: DYSPNOEA
  2. ADVAIR DISKUS 100/50 [Concomitant]
  3. METFORMIN HCL [Concomitant]
  4. FUROSEMIDE [Concomitant]
  5. MIRAPEX [Concomitant]
  6. PREDNISONE [Concomitant]
  7. THYROXINE [Concomitant]
  8. RAMIPRIL [Concomitant]
  9. SINGULAIR [Concomitant]
  10. CALTRATE [Concomitant]
  11. CONTRAM [Concomitant]
  12. B-15 [Concomitant]
  13. TYLENOL [Concomitant]
  14. METAMUCIL [Concomitant]
  15. TOBRIMYCIN [Concomitant]
     Route: 048

REACTIONS (2)
  - ADVERSE DRUG REACTION [None]
  - DRUG EFFECT DECREASED [None]
